FAERS Safety Report 17781477 (Version 1)
Quarter: 2020Q2

REPORT INFORMATION
  Report Type: Spontaneous
  Country: US (occurrence: US)
  Receive Date: 20200513
  Receipt Date: 20200513
  Transmission Date: 20200714
  Serious: Yes (Hospitalization)
  Sender: FDA-Public Use
  Company Number: None

PATIENT
  Age: 68 Year
  Sex: Male
  Weight: 67 kg

DRUGS (1)
  1. ZOLEDRONIC (ZOLEDRONIC ACID 5MG/BAG INJ, 100ML) [Suspect]
     Active Substance: ZOLEDRONIC ACID
     Indication: OSTEOPOROSIS
     Route: 042
     Dates: start: 20190726, end: 20190726

REACTIONS (2)
  - Osteonecrosis of jaw [None]
  - Dysaesthesia [None]

NARRATIVE: CASE EVENT DATE: 20200224
